FAERS Safety Report 8377071-3 (Version None)
Quarter: 2012Q2

REPORT INFORMATION
  Report Type: 
  Country: None (occurrence: None)
  Receive Date: 20120521
  Receipt Date: 20120508
  Transmission Date: 20120825
  Serious: Yes (Other)
  Sender: FDA-Public Use
  Company Number: 2012-00121

PATIENT
  Age: 27 Year
  Sex: Female
  Weight: 105 kg

DRUGS (1)
  1. ZICAM INTENSE SINUS RELIEF [Suspect]
     Indication: SINUS DISORDER
     Dosage: 1 DOSE
     Dates: start: 20120511

REACTIONS (4)
  - CHEST PAIN [None]
  - NASAL DISCOMFORT [None]
  - PAIN IN EXTREMITY [None]
  - THROAT IRRITATION [None]
